FAERS Safety Report 8352496-0 (Version None)
Quarter: 2012Q2

REPORT INFORMATION
  Report Type: 
  Country: None (occurrence: None)
  Receive Date: 20120511
  Receipt Date: 20120504
  Transmission Date: 20120825
  Serious: Yes (Other)
  Sender: FDA-Public Use
  Company Number: PHFR2012GB002747

PATIENT
  Sex: Male

DRUGS (1)
  1. CLOZARIL [Suspect]
     Indication: SCHIZOPHRENIA
     Dosage: UNK UKN, UNK
     Route: 048
     Dates: start: 20040126

REACTIONS (6)
  - PAIN [None]
  - HALLUCINATION [None]
  - WHITE BLOOD CELL COUNT INCREASED [None]
  - ASTHENIA [None]
  - NEUTROPHIL COUNT INCREASED [None]
  - EMOTIONAL DISTRESS [None]
